FAERS Safety Report 18404020 (Version 1)
Quarter: 2020Q4

REPORT INFORMATION
  Report Type: Spontaneous
  Country: ES (occurrence: ES)
  Receive Date: 20201020
  Receipt Date: 20201020
  Transmission Date: 20210114
  Serious: Yes (Hospitalization)
  Sender: FDA-Public Use
  Company Number: ES-TEVA-2020-ES-1839142

PATIENT
  Age: 92 Year
  Sex: Female

DRUGS (6)
  1. OMEPRAZOL (2141A) [Concomitant]
     Active Substance: OMEPRAZOLE
     Dosage: 20MG FASTING
     Dates: start: 20120427
  2. ORFIDAL 1 MG COMPRIMIDOS, 50 COMPRIMIDOS [Concomitant]
     Active Substance: LORAZEPAM
     Dosage: 1 MILLIGRAM DAILY;   NIGHT
     Dates: start: 20161008
  3. SINTROM [Concomitant]
     Active Substance: ACENOCOUMAROL
     Dosage: IRREGULAR GUIDELINE
     Dates: start: 20080529
  4. FUROSEMIDA (1615A) [Concomitant]
     Active Substance: FUROSEMIDE
     Dosage: 20 MILLIGRAM DAILY;  BREAKFAST
     Dates: start: 20170225
  5. LYRICA 75 MG CAPSULAS DURAS, 56 CAPSULAS [Concomitant]
     Dosage: 75 MILLIGRAM DAILY;  DINNER
     Dates: start: 20120627
  6. BISOPROLOL (2328A) [Suspect]
     Active Substance: BISOPROLOL
     Dosage: 5MG BREAKFAST, 2.5MG DINNER,
     Route: 065
     Dates: start: 20180806

REACTIONS (1)
  - Presyncope [Recovered/Resolved]

NARRATIVE: CASE EVENT DATE: 20190912
